FAERS Safety Report 17761631 (Version 1)
Quarter: 2020Q2

REPORT INFORMATION
  Report Type: Other
  Country: ES (occurrence: ES)
  Receive Date: 20200508
  Receipt Date: 20200508
  Transmission Date: 20200714
  Serious: Yes (Life-Threatening, Hospitalization, Other)
  Sender: FDA-Public Use
  Company Number: ES-CADILA HEALTHCARE LIMITED-ES-ZYDUS-027223

PATIENT

DRUGS (10)
  1. SERDOLECT [Concomitant]
     Active Substance: SERTINDOLE
     Indication: PRODUCT USED FOR UNKNOWN INDICATION
     Dosage: 24 MILLIGRAM,DOSAGE UNIT FREQUENCY: 24 MG? FREQUENCY UNIT: 1 DAY,(INTERVAL :1 DAYS)
     Route: 048
     Dates: start: 2013, end: 20140912
  2. TOPIRAMATE. [Suspect]
     Active Substance: TOPIRAMATE
     Indication: SCHIZOPHRENIFORM DISORDER
     Dosage: 300 MILLIGRAM,300 MG, QD,(INTERVAL :1 DAYS)
     Route: 048
     Dates: start: 2011, end: 20140915
  3. DIAZEPAM. [Concomitant]
     Active Substance: DIAZEPAM
     Indication: PRODUCT USED FOR UNKNOWN INDICATION
     Dosage: 10 MILLIGRAM,10 MG, QD,(INTERVAL :1 DAYS)
     Route: 048
     Dates: start: 2001, end: 20140915
  4. DIAZEPAM. [Concomitant]
     Active Substance: DIAZEPAM
     Dosage: 10 MILLIGRAM,DOSAGE UNIT FREQUENCY: 10 MG? FREQUENCY UNIT: 1 DAY,(INTERVAL :1 DAYS)
     Route: 048
     Dates: start: 2001, end: 20140915
  5. CLOZAPINE. [Suspect]
     Active Substance: CLOZAPINE
     Indication: SCHIZOPHRENIFORM DISORDER
     Dosage: 200 MILLIGRAM,200 MG, QD,(INTERVAL :1 DAYS)
     Route: 048
     Dates: start: 20140508, end: 20140912
  6. LITIO [Concomitant]
     Active Substance: LITHIUM CARBONATE
     Dosage: 400 MILLIGRAM,400 MG, QD,(INTERVAL :1 DAYS)
     Route: 048
     Dates: start: 2011, end: 20140915
  7. LITIO [Concomitant]
     Active Substance: LITHIUM CARBONATE
     Indication: PRODUCT USED FOR UNKNOWN INDICATION
     Dosage: 400 MILLIGRAM,DOSAGE UNIT FREQUENCY: 400 MG? FREQUENCY UNIT: 1 DAY,(INTERVAL :1 DAYS)
     Route: 048
     Dates: start: 2011, end: 20140915
  8. SERDOLECT [Concomitant]
     Active Substance: SERTINDOLE
     Dosage: 12 MILLIGRAM,12 MG, BID,(INTERVAL :1 DAYS)
     Route: 048
     Dates: start: 2013, end: 20140912
  9. CLOZAPINE. [Suspect]
     Active Substance: CLOZAPINE
     Indication: SCHIZOPHRENIFORM DISORDER
     Dosage: 400 MILLIGRAM,DOSAGE UNIT FREQUENCY: 400 MG? FREQUENCY UNIT: 1 DAY,(INTERVAL :1 DAYS)
     Route: 048
     Dates: start: 20140508, end: 20140912
  10. ABILIFY [Suspect]
     Active Substance: ARIPIPRAZOLE
     Indication: SCHIZOPHRENIFORM DISORDER
     Dosage: 30 MILLIGRAM,DOSAGE UNIT FREQUENCY: 30 MG? FREQUENCY UNIT: 1 DAY,(INTERVAL :1 DAYS)
     Route: 048
     Dates: start: 2009, end: 20140915

REACTIONS (1)
  - Agranulocytosis [Recovered/Resolved]

NARRATIVE: CASE EVENT DATE: 20140902
